FAERS Safety Report 9675593 (Version 2)
Quarter: 2013Q4

REPORT INFORMATION
  Report Type: Spontaneous
  Country: US (occurrence: US)
  Receive Date: 20131107
  Receipt Date: 20131213
  Transmission Date: 20140711
  Serious: Yes (Life-Threatening, Congenital Anomaly)
  Sender: FDA-Public Use
  Company Number: US-PFIZER INC-2013314931

PATIENT
  Sex: Male

DRUGS (9)
  1. ZOLOFT [Suspect]
     Dosage: UNK
     Route: 064
     Dates: start: 2009, end: 2010
  2. SERTRALINE HCL [Suspect]
     Dosage: UNK
     Route: 064
     Dates: start: 2009, end: 2010
  3. ABILIFY [Concomitant]
     Dosage: UNK
     Route: 064
  4. ADDERALL [Concomitant]
     Dosage: UNK
     Route: 064
  5. KLONOPIN [Concomitant]
     Dosage: UNK
     Route: 064
  6. CELEXA [Concomitant]
     Dosage: UNK
     Route: 064
  7. VICODIN [Concomitant]
     Dosage: 500 MG, UNK
     Route: 064
  8. SEROQUEL [Concomitant]
     Dosage: UNK
     Route: 064
  9. XANAX [Concomitant]
     Dosage: UNK
     Route: 064

REACTIONS (3)
  - Maternal exposure during pregnancy [Unknown]
  - Congenital anomaly [Unknown]
  - Penis disorder [Unknown]
